FAERS Safety Report 4796694-1 (Version None)
Quarter: 2005Q4

REPORT INFORMATION
  Report Type: 
  Country: None (occurrence: None)
  Receive Date: 20051007
  Receipt Date: 20050930
  Transmission Date: 20060501
  Serious: Yes (Hospitalization)
  Sender: FDA-Public Use
  Company Number: 05H-124-0302370-00

PATIENT
  Age: 28 Year
  Sex: Female
  Weight: 70 kg

DRUGS (2)
  1. ABOCAIN SPINAL INJECTION (BUPIVACAINE HYDROCHLORIDE) [Suspect]
     Indication: SPINAL ANAESTHESIA
     Dosage: 1.6 CC, ONCE, INTRATHECAL
     Route: 037
     Dates: start: 20050101, end: 20050101
  2. NALBUPHINE [Concomitant]

REACTIONS (6)
  - BRIEF PSYCHOTIC DISORDER, WITH POSTPARTUM ONSET [None]
  - DISORIENTATION [None]
  - HEADACHE [None]
  - NECK PAIN [None]
  - RESTLESSNESS [None]
  - SEDATION [None]
